FAERS Safety Report 6930275-6 (Version None)
Quarter: 2010Q3

REPORT INFORMATION
  Report Type: 
  Country: None (occurrence: None)
  Receive Date: 20100813
  Receipt Date: 20100728
  Transmission Date: 20110219
  Serious: Yes (Other)
  Sender: FDA-Public Use
  Company Number: 7004529

PATIENT
  Age: 45 Year
  Sex: Female

DRUGS (7)
  1. SAIZEN [Suspect]
     Indication: BLOOD GROWTH HORMONE
     Dosage: 1 IN 1 D
     Dates: start: 20090601
  2. T3 (LIOTHYRONINE SODIUM) [Concomitant]
  3. PROGESTERONE [Concomitant]
  4. ESTROGEN (ESTROGEN NOS) [Concomitant]
  5. DHEA (PRASTERONE) [Concomitant]
  6. LOW CORTISOL (HYDROCORTISONE) [Concomitant]
  7. LEVOTHYROXINE SODIUM [Concomitant]

REACTIONS (3)
  - MIGRAINE [None]
  - PITUITARY TUMOUR BENIGN [None]
  - PITUITARY-DEPENDENT CUSHING'S SYNDROME [None]
